FAERS Safety Report 19746972 (Version 1)
Quarter: 2021Q3

REPORT INFORMATION
  Report Type: Spontaneous
  Country: US (occurrence: US)
  Receive Date: 20210825
  Receipt Date: 20210825
  Transmission Date: 20211014
  Serious: No
  Sender: FDA-Public Use
  Company Number: US-GALDERMA-US2021015039

PATIENT

DRUGS (4)
  1. PROACTIV MD ULTRA HYDRATING MOISTURIZER [Concomitant]
     Indication: PRODUCT USED FOR UNKNOWN INDICATION
     Dosage: 1 DOSAGE FORM, QD,DAILY
     Route: 061
  2. PROACTIV MD ULTRA GENTLE CLEANSER [Concomitant]
     Indication: PRODUCT USED FOR UNKNOWN INDICATION
     Dosage: 1 DOSAGE FORM, QD,DAILY
     Route: 061
  3. PROACTIV PORE PURIFYING NOSE STRIP [Concomitant]
     Indication: PRODUCT USED FOR UNKNOWN INDICATION
     Dosage: 1 DOSAGE FORM, QD,DAILY
     Route: 061
  4. PROACTIV MD ADAPALENE ACNE TREATMENT [Suspect]
     Active Substance: ADAPALENE
     Indication: PRODUCT USED FOR UNKNOWN INDICATION
     Dosage: 1 DOSAGE FORM, QD,DAILY
     Route: 061

REACTIONS (3)
  - Dry skin [Unknown]
  - Skin burning sensation [Unknown]
  - Drug ineffective [Unknown]
